FAERS Safety Report 6893176-8 (Version None)
Quarter: 2010Q3

REPORT INFORMATION
  Report Type: 
  Country: None (occurrence: None)
  Receive Date: 20100731
  Receipt Date: 20090616
  Transmission Date: 20110219
  Serious: No
  Sender: FDA-Public Use
  Company Number: US-PFIZER INC-2005138894

PATIENT
  Sex: Female

DRUGS (12)
  1. NEURONTIN [Suspect]
     Indication: NEURALGIA
     Dosage: 600 MG, 3X/DAY
     Route: 065
     Dates: start: 20050701
  2. LYRICA [Suspect]
     Indication: NEURALGIA
     Dosage: 50 MG, 2X/DAY
     Route: 048
     Dates: start: 20051001
  3. METHOCARBAMOL [Concomitant]
     Dosage: UNK
     Route: 065
  4. TRAMADOL HYDROCHLORIDE [Concomitant]
     Dosage: UNK
     Route: 065
  5. NABUMETONE [Concomitant]
     Dosage: UNK
     Route: 065
  6. PROTONIX [Concomitant]
     Dosage: UNK
     Route: 065
  7. DITROPAN [Concomitant]
     Dosage: UNK
     Route: 065
  8. ZOLOFT [Concomitant]
     Dosage: UNK
     Route: 065
  9. PREMARIN [Concomitant]
     Dosage: UNK
     Route: 065
  10. POTASSIUM [Concomitant]
     Route: 065
  11. FOSAMAX [Concomitant]
     Route: 065
  12. ZAROXOLYN [Concomitant]
     Route: 065

REACTIONS (8)
  - FLUID RETENTION [None]
  - INSOMNIA [None]
  - OEDEMA MOUTH [None]
  - PAIN [None]
  - SKIN STRIAE [None]
  - STOMATITIS [None]
  - SWOLLEN TONGUE [None]
  - WEIGHT INCREASED [None]
